FAERS Safety Report 4919052-5 (Version None)
Quarter: 2006Q1

REPORT INFORMATION
  Report Type: 
  Country: None (occurrence: None)
  Receive Date: 20060222
  Receipt Date: 20050831
  Transmission Date: 20060701
  Serious: Yes (Hospitalization, Disabling)
  Sender: FDA-Public Use
  Company Number: US-MERCK-0509USA00122

PATIENT
  Age: 50 Year
  Sex: Female
  Weight: 114 kg

DRUGS (11)
  1. VIOXX [Suspect]
     Indication: ARTHRITIS
     Route: 048
     Dates: start: 20020101, end: 20040531
  2. VIOXX [Suspect]
     Indication: SCOLIOSIS
     Route: 048
     Dates: start: 20020101, end: 20040531
  3. HUMULIN N [Concomitant]
     Indication: DIABETES MELLITUS
     Route: 065
  4. HUMULIN R [Concomitant]
     Indication: DIABETES MELLITUS
     Route: 065
  5. NORVASC [Concomitant]
     Route: 065
  6. HYDROCHLOROTHIAZIDE [Concomitant]
     Route: 065
  7. LISINOPRIL [Concomitant]
     Indication: HYPERTENSION
     Route: 065
  8. LIPITOR [Concomitant]
     Indication: HYPERLIPIDAEMIA
     Route: 065
  9. FLEXERIL [Concomitant]
     Indication: SPINAL COLUMN STENOSIS
     Route: 065
  10. CARBIDOPA AND LEVODOPA [Concomitant]
     Indication: RESTLESS LEGS SYNDROME
     Route: 065
  11. ASPIRIN [Concomitant]
     Route: 065

REACTIONS (3)
  - CEREBROVASCULAR ACCIDENT [None]
  - RENAL FAILURE [None]
  - SPINAL COLUMN STENOSIS [None]
